FAERS Safety Report 9329200 (Version 2)
Quarter: 2015Q4

REPORT INFORMATION
  Report Type: Spontaneous
  Country: US (occurrence: US)
  Receive Date: 20130604
  Receipt Date: 20151203
  Transmission Date: 20160305
  Serious: Yes (Other)
  Sender: FDA-Public Use
  Company Number: US-ASTRAZENECA-2013SE37053

PATIENT
  Age: 71 Year
  Sex: Female

DRUGS (21)
  1. SYMBICORT [Suspect]
     Active Substance: BUDESONIDE\FORMOTEROL FUMARATE DIHYDRATE
     Indication: CHRONIC OBSTRUCTIVE PULMONARY DISEASE
     Dosage: 160 MCG 2 PUFFS BID
     Route: 055
  2. LISINOPRIL. [Suspect]
     Active Substance: LISINOPRIL
     Indication: HYPERTENSION
     Route: 048
  3. NEURONTIN [Concomitant]
     Active Substance: GABAPENTIN
     Indication: NEURALGIA
  4. LEXAPRO [Concomitant]
     Active Substance: ESCITALOPRAM OXALATE
     Indication: ANXIETY
  5. LEXAPRO [Concomitant]
     Active Substance: ESCITALOPRAM OXALATE
     Indication: DEPRESSION
  6. PEPCID [Concomitant]
     Active Substance: FAMOTIDINE
     Indication: HYPERCHLORHYDRIA
  7. TYLENOL PM [Concomitant]
     Active Substance: ACETAMINOPHEN\DIPHENHYDRAMINE
     Indication: SLEEP DISORDER
     Dosage: 500/25 AT NIGHT
  8. VITAMIN D3 [Concomitant]
     Active Substance: CHOLECALCIFEROL
     Dosage: 2000 IU
  9. VITAMIN C [Concomitant]
     Active Substance: ASCORBIC ACID
  10. MUCINEX [Concomitant]
     Active Substance: GUAIFENESIN
     Indication: OROPHARYNGEAL DISCOMFORT
     Dosage: 1200 MG PRN USUALLY TAKES 3 OR 4 TIMES A WEEK
  11. BACLOFEN. [Concomitant]
     Active Substance: BACLOFEN
     Indication: MUSCLE SPASMS
     Dosage: 5 MG IN AM AND 20 MG IN PM
  12. OXYBUTIN ER [Concomitant]
     Indication: POLLAKIURIA
  13. LOPRESSOR [Concomitant]
     Active Substance: METOPROLOL TARTRATE
     Indication: HYPERTENSION
  14. MUCINEX [Concomitant]
     Active Substance: GUAIFENESIN
     Indication: CHEST DISCOMFORT
     Dosage: 1200 MG PRN USUALLY TAKES 3 OR 4 TIMES A WEEK
  15. SPIRIVA [Concomitant]
     Active Substance: TIOTROPIUM BROMIDE MONOHYDRATE
     Indication: CHRONIC OBSTRUCTIVE PULMONARY DISEASE
     Dosage: DAILY
     Route: 050
  16. LIPITOR [Concomitant]
     Active Substance: ATORVASTATIN CALCIUM
     Indication: BLOOD CHOLESTEROL ABNORMAL
  17. FISH OIL [Concomitant]
     Active Substance: FISH OIL
  18. MAGNESIUM [Concomitant]
     Active Substance: MAGNESIUM
  19. COLACE [Concomitant]
     Active Substance: DOCUSATE SODIUM
     Indication: CONSTIPATION
  20. NORVASC [Concomitant]
     Active Substance: AMLODIPINE BESYLATE
     Indication: HYPERTENSION
  21. MULTIVITAMIN [Concomitant]
     Active Substance: VITAMINS

REACTIONS (12)
  - Speech disorder [Unknown]
  - Dyspnoea [Unknown]
  - Muscular weakness [Unknown]
  - Dysphonia [Unknown]
  - Cerebrovascular accident [Unknown]
  - Hypertension [Unknown]
  - Monoplegia [Unknown]
  - Weight increased [Unknown]
  - Limb deformity [Unknown]
  - Oropharyngeal discomfort [Unknown]
  - Blood cholesterol increased [Unknown]
  - Loss of control of legs [Unknown]

NARRATIVE: CASE EVENT DATE: 2011
